FAERS Safety Report 8450658 (Version 4)
Quarter: 2013Q3

REPORT INFORMATION
  Report Type: Spontaneous
  Country: JP (occurrence: None)
  Receive Date: 20120229
  Receipt Date: 20130712
  Transmission Date: 20140515
  Serious: Yes (Hospitalization, Other)
  Sender: FDA-Public Use
  Company Number: ADR-2012-00435

PATIENT
  Age: 6 Year
  Sex: Female
  Weight: 20 kg

DRUGS (2)
  1. GABALON INTRATHECAL [Suspect]
     Indication: ENCEPHALITIS
  2. GABALON INTRATHECAL [Suspect]
     Indication: DYSTONIA

REACTIONS (8)
  - Hydrocephalus [None]
  - Cerebrospinal fluid retention [None]
  - Medical device complication [None]
  - Medical device site reaction [None]
  - Implant site extravasation [None]
  - Intracranial hypotension [None]
  - Myotonia [None]
  - Encephalitis [None]
